FAERS Safety Report 10627055 (Version 1)
Quarter: 2014Q4

REPORT INFORMATION
  Report Type: Spontaneous
  Country: US (occurrence: IT)
  Receive Date: 20141204
  Receipt Date: 20141204
  Transmission Date: 20150529
  Serious: Yes (Other)
  Sender: FDA-Public Use
  Company Number: US-BAXTER-2014BAX070835

PATIENT
  Age: 46 Year
  Sex: Female

DRUGS (2)
  1. SURGICEL [Suspect]
     Active Substance: CELLULOSE, OXIDIZED
     Indication: TISSUE SEALING
     Route: 065
  2. TISSEEL [Suspect]
     Active Substance: FIBRINOGEN HUMAN\THROMBIN HUMAN
     Indication: TISSUE SEALING
     Route: 065

REACTIONS (1)
  - Hemiparesis [Recovered/Resolved]
